FAERS Safety Report 15389337 (Version 1)
Quarter: 2018Q3

REPORT INFORMATION
  Report Type: Spontaneous
  Country: US (occurrence: US)
  Receive Date: 20180917
  Receipt Date: 20180917
  Transmission Date: 20181010
  Serious: No
  Sender: FDA-Public Use
  Company Number: US-TOLMAR, INC.-2018US005591

PATIENT

DRUGS (24)
  1. LIDOCAINE. [Concomitant]
     Active Substance: LIDOCAINE
     Dosage: UNK, BID AS NEEDED
  2. CALCIUM [Concomitant]
     Active Substance: CALCIUM
     Dosage: 2 DF, DAILY
     Route: 048
  3. BICALUTAMIDE. [Concomitant]
     Active Substance: BICALUTAMIDE
     Indication: PROSTATE CANCER
     Dosage: 1 DF, DAILY
     Route: 048
  4. FAMOTIDINE. [Concomitant]
     Active Substance: FAMOTIDINE
     Indication: GASTROOESOPHAGEAL REFLUX DISEASE
     Dosage: 1 DF, BID
     Route: 048
  5. SODIUM CHLORIDE. [Concomitant]
     Active Substance: SODIUM CHLORIDE
     Indication: NASAL DRYNESS
     Dosage: 2 DF, IN EACH NOSTRIL, 4 TIMES A DAY
     Route: 045
  6. CHOLECALCIFEROL [Concomitant]
     Active Substance: CHOLECALCIFEROL
     Indication: VITAMIN D DEFICIENCY
     Dosage: 2 DF, DAILY
     Route: 048
  7. FISH OIL [Concomitant]
     Active Substance: FISH OIL
     Dosage: 1 DF, TID
     Dates: start: 20121031
  8. ELIGARD [Suspect]
     Active Substance: LEUPROLIDE ACETATE
     Indication: PRODUCT USED FOR UNKNOWN INDICATION
     Dosage: 45 MG, 6 MONTH DOSE
     Route: 058
     Dates: start: 20171019
  9. HYDROPHILIC [Concomitant]
     Indication: DRY SKIN
     Dosage: AT BEDTIME
     Route: 061
  10. OXYBUTYNIN CHLORIDE. [Concomitant]
     Active Substance: OXYBUTYNIN CHLORIDE
     Indication: BLADDER DISORDER
     Dosage: 1 DF, TID
     Route: 048
  11. CHOLECALCIFEROL [Concomitant]
     Active Substance: CHOLECALCIFEROL
     Dosage: 1000 U, UNK
     Dates: start: 20121031
  12. ATORVASTATIN CALCIUM. [Concomitant]
     Active Substance: ATORVASTATIN CALCIUM
     Indication: BLOOD CHOLESTEROL
     Dosage: 1 DF, AT BEDTIME
     Route: 048
  13. IBUPROFEN. [Concomitant]
     Active Substance: IBUPROFEN
     Indication: PAIN
     Dosage: 1 DF, TID, AS NEEDED, TAKE WITH FOOD
     Route: 048
  14. IPRATROPIUM BR [Concomitant]
     Dosage: 1 DF, TID
     Route: 045
  15. ASA [Concomitant]
     Active Substance: ASPIRIN
     Dosage: UNK, DAILY
  16. TAMSULOSIN HCL [Concomitant]
     Active Substance: TAMSULOSIN HYDROCHLORIDE
     Indication: PROSTATE CANCER
     Dosage: 2 DF, DAILY, WITH FOOD
     Route: 048
  17. CYANOCOBALAMIN. [Concomitant]
     Active Substance: CYANOCOBALAMIN
     Dosage: 2000 MG, DAILY
     Dates: start: 20121031
  18. ASCORBIC ACID. [Concomitant]
     Active Substance: ASCORBIC ACID
     Dosage: 1000 MG, BID
     Dates: start: 20121031
  19. ELIGARD [Suspect]
     Active Substance: LEUPROLIDE ACETATE
     Dosage: 45 MG, 6 MONTH DOSE
     Route: 058
     Dates: start: 20180425
  20. SIMETHICONE (DIMETHICONE) [Concomitant]
     Active Substance: DIMETHICONE
     Indication: FLATULENCE
     Dosage: 2 DF, DAILY AS NEEDED
     Route: 048
  21. FOLIC ACID. [Concomitant]
     Active Substance: FOLIC ACID
     Dosage: 1 MG, DAILY
     Dates: start: 20121031
  22. CLOPIDOGREL BISULFATE. [Concomitant]
     Active Substance: CLOPIDOGREL BISULFATE
     Indication: CEREBROVASCULAR ACCIDENT
     Dosage: 1 DF, DAILY
     Route: 048
  23. SERTRALINE HCL [Concomitant]
     Active Substance: SERTRALINE HYDROCHLORIDE
     Indication: POST-TRAUMATIC STRESS DISORDER
     Dosage: 2 DF, DAILY EVERY MORNING
     Route: 048
  24. MELATONIN [Concomitant]
     Active Substance: MELATONIN
     Indication: SLEEP DISORDER
     Dosage: 1 DF, AT BEDTIME

REACTIONS (1)
  - Blood testosterone increased [Unknown]

NARRATIVE: CASE EVENT DATE: 20180302
